FAERS Safety Report 4566356-4 (Version None)
Quarter: 2005Q1

REPORT INFORMATION
  Report Type: 
  Country: None (occurrence: None)
  Receive Date: 20050128
  Receipt Date: 20050112
  Transmission Date: 20050727
  Serious: Yes (Life-Threatening, Hospitalization)
  Sender: FDA-Public Use
  Company Number: 2004-BP-13680NB

PATIENT
  Age: 45 Year
  Sex: Male

DRUGS (1)
  1. MOBIC [Suspect]
     Indication: SPINAL OSTEOARTHRITIS
     Dosage: 10 MCG (10 MG) PO
     Route: 048
     Dates: start: 20041013, end: 20041028

REACTIONS (1)
  - DUODENAL ULCER [None]
